FAERS Safety Report 22023574 (Version 1)
Quarter: 2023Q1

REPORT INFORMATION
  Report Type: Spontaneous
  Country: US (occurrence: US)
  Receive Date: 20230223
  Receipt Date: 20230223
  Transmission Date: 20230417
  Serious: No
  Sender: FDA-Public Use
  Company Number: US-SANOFI-01501033

PATIENT
  Age: 2 Year

DRUGS (1)
  1. DUPIXENT [Suspect]
     Active Substance: DUPILUMAB
     Dosage: 200MG , QM
     Dates: start: 202208

REACTIONS (3)
  - Injection site induration [Unknown]
  - Injection site erythema [Unknown]
  - Injection site pain [Unknown]
